FAERS Safety Report 7974569-4 (Version None)
Quarter: 2011Q4

REPORT INFORMATION
  Report Type: 
  Country: None (occurrence: None)
  Receive Date: 20111213
  Receipt Date: 20111201
  Transmission Date: 20120403
  Serious: Yes (Other)
  Sender: FDA-Public Use
  Company Number: CA-AMGEN-CANSP2011025441

PATIENT
  Age: 78 Year
  Sex: Female
  Weight: 61.2 kg

DRUGS (3)
  1. ENBREL [Suspect]
     Indication: RHEUMATOID ARTHRITIS
     Dosage: 50 MG, QWK
     Dates: start: 20070401, end: 20110201
  2. ARAVA [Concomitant]
     Indication: RHEUMATOID ARTHRITIS
     Dosage: 20 MG, QD
     Dates: end: 20110201
  3. CRESTOR [Concomitant]
     Dosage: UNK
     Dates: end: 20110201

REACTIONS (18)
  - FATIGUE [None]
  - CACHEXIA [None]
  - CHEST DISCOMFORT [None]
  - HYPOAESTHESIA [None]
  - MALAISE [None]
  - PYREXIA [None]
  - DYSGEUSIA [None]
  - RHEUMATOID ARTHRITIS [None]
  - PULMONARY MASS [None]
  - PNEUMONIA CRYPTOCOCCAL [None]
  - DECREASED APPETITE [None]
  - HUNGER [None]
  - NASOPHARYNGITIS [None]
  - OEDEMA PERIPHERAL [None]
  - CHILLS [None]
  - HEADACHE [None]
  - PRODUCTIVE COUGH [None]
  - DYSPNOEA EXERTIONAL [None]
